FAERS Safety Report 4786975-X (Version None)
Quarter: 2005Q4

REPORT INFORMATION
  Report Type: 
  Country: None (occurrence: None)
  Receive Date: 20051004
  Receipt Date: 20050929
  Transmission Date: 20060501
  Serious: Yes (Hospitalization)
  Sender: FDA-Public Use
  Company Number: US-GLAXOSMITHKLINE-A0576415A

PATIENT
  Age: 25 Year
  Sex: Female

DRUGS (19)
  1. LAMICTAL [Suspect]
     Indication: EPILEPSY
     Dosage: 400MG TWICE PER DAY
     Route: 048
  2. ACYCLOVIR [Suspect]
     Route: 042
     Dates: start: 20050926
  3. OMEPRAZOLE [Concomitant]
  4. FELBAMATE [Concomitant]
  5. ZONISAMIDE [Concomitant]
  6. DOCUSATE [Concomitant]
  7. LORAZEPAM [Concomitant]
  8. PROPOFOL [Concomitant]
  9. COMBIVENT [Concomitant]
  10. HEPARIN [Concomitant]
  11. D5 NORMAL SALINE [Concomitant]
  12. VANCOMYCIN [Concomitant]
  13. CEFTRIAXONE [Concomitant]
  14. PHENYTOIN [Concomitant]
  15. AZITHROMYCIN [Concomitant]
  16. NORMAL SALINE [Concomitant]
  17. POTASSIUM CHLORIDE [Concomitant]
  18. MAGNESIUM GLUCONATE [Concomitant]
  19. NEUTRA-PHOS-K [Concomitant]

REACTIONS (1)
  - ANAEMIA MEGALOBLASTIC [None]
